FAERS Safety Report 5943986-6 (Version None)
Quarter: 2008Q4

REPORT INFORMATION
  Report Type: 
  Country: None (occurrence: None)
  Receive Date: 20081106
  Receipt Date: 20081024
  Transmission Date: 20090506
  Serious: Yes (Death, Other)
  Sender: FDA-Public Use
  Company Number: US-ELI_LILLY_AND_COMPANY-US200809006694

PATIENT
  Sex: Female
  Weight: 95.238 kg

DRUGS (7)
  1. ZYPREXA [Suspect]
     Indication: DEPRESSION
     Dosage: 20 MG, EACH EVENING
     Dates: start: 20080801
  2. OPIOIDS [Concomitant]
  3. GABAPENTIN [Concomitant]
  4. LIPITOR [Concomitant]
  5. ASPIRIN [Concomitant]
  6. OXYCODONE HCL [Concomitant]
  7. HYDROCODONE [Concomitant]

REACTIONS (8)
  - ARTERIOSCLEROSIS CORONARY ARTERY [None]
  - BRAIN HERNIATION [None]
  - CARDIOMEGALY [None]
  - CONTUSION [None]
  - PULMONARY CONGESTION [None]
  - PULMONARY OEDEMA [None]
  - SKIN ULCER [None]
  - THERAPEUTIC AGENT TOXICITY [None]
